FAERS Safety Report 10152577 (Version 2)
Quarter: 2014Q2

REPORT INFORMATION
  Report Type: Report from Study
  Country: US (occurrence: US)
  Receive Date: 20140505
  Receipt Date: 20140505
  Transmission Date: 20141212
  Serious: Yes (Other)
  Sender: FDA-Public Use
  Company Number: US-TAKEDA-THQ2013A05094

PATIENT
  Sex: Female

DRUGS (7)
  1. LEUPRORELIN [Suspect]
     Indication: ENDOMETRIOSIS
     Dosage: 11.25 MG, Q3MONTHS
     Route: 050
     Dates: start: 2010, end: 2010
  2. LEUPRORELIN [Suspect]
     Dosage: 11.25 MG, Q3MONTHS
     Route: 050
     Dates: start: 201307
  3. MULTIVITAMIN [Concomitant]
     Indication: PRODUCT USED FOR UNKNOWN INDICATION
  4. VIIBRYD [Concomitant]
     Indication: PRODUCT USED FOR UNKNOWN INDICATION
  5. SEROQUEL [Concomitant]
     Indication: PRODUCT USED FOR UNKNOWN INDICATION
  6. KLONOPIN [Concomitant]
     Indication: PRODUCT USED FOR UNKNOWN INDICATION
  7. NORETHINDRONE ACETATE [Concomitant]
     Indication: PRODUCT USED FOR UNKNOWN INDICATION
     Dosage: 5 MG, UNK

REACTIONS (6)
  - Menstruation irregular [Unknown]
  - Endometriosis [Recovered/Resolved]
  - Cardiac disorder [Unknown]
  - Endometriosis [Unknown]
  - Endometriosis [Unknown]
  - Anxiety [Unknown]
